FAERS Safety Report 21557540 (Version 5)
Quarter: 2023Q2

REPORT INFORMATION
  Report Type: Spontaneous
  Country: CA (occurrence: CA)
  Receive Date: 20221106
  Receipt Date: 20230609
  Transmission Date: 20230721
  Serious: Yes (Other)
  Sender: FDA-Public Use
  Company Number: CA-CELLTRION INC.-2022CA006942

PATIENT

DRUGS (12)
  1. INFLECTRA [Suspect]
     Active Substance: INFLIXIMAB-DYYB
     Indication: Colitis ulcerative
     Dosage: 400 MG, EVERY 8 WEEKS FOR 24 MONTHS
     Route: 042
     Dates: start: 20220609, end: 20220609
  2. INFLECTRA [Suspect]
     Active Substance: INFLIXIMAB-DYYB
     Dosage: 400 MG, EVERY 8 WEEK
     Route: 042
     Dates: start: 20220609, end: 20220804
  3. INFLECTRA [Suspect]
     Active Substance: INFLIXIMAB-DYYB
     Dosage: 400 MG, EVERY 8 WEEKS
     Route: 042
     Dates: start: 20220804
  4. INFLECTRA [Suspect]
     Active Substance: INFLIXIMAB-DYYB
     Dosage: 7.5 MG/KG, 548MG EVERY 6 WEEKS
     Route: 042
     Dates: start: 20220915
  5. INFLECTRA [Suspect]
     Active Substance: INFLIXIMAB-DYYB
     Dosage: 7.5 MG/KG,  EVERY 6 WEEKS
     Route: 042
     Dates: start: 20221026
  6. INFLECTRA [Suspect]
     Active Substance: INFLIXIMAB-DYYB
     Dosage: 7.5 MG/KG EVERY 6 WEEKS
     Route: 042
     Dates: start: 20221208
  7. INFLECTRA [Suspect]
     Active Substance: INFLIXIMAB-DYYB
     Dosage: 570 MG EVERY 6 WEEK
     Route: 042
     Dates: start: 20230123
  8. INFLECTRA [Suspect]
     Active Substance: INFLIXIMAB-DYYB
     Dosage: 7.5 MG/KG EVERY 6 WEEKS
     Route: 042
     Dates: start: 20230421
  9. INFLECTRA [Suspect]
     Active Substance: INFLIXIMAB-DYYB
     Dosage: 578 MG (7.5 MG/KG) AFTER 6 WEEKS
     Route: 042
     Dates: start: 20230601
  10. CORTISONE [Concomitant]
     Active Substance: CORTISONE
     Dosage: 40 MG
     Dates: start: 20220922
  11. CORTISONE [Concomitant]
     Active Substance: CORTISONE
     Dosage: 15 MG, DAILY (THIS DAY IS 15 MG/DAY)
     Dates: start: 202210, end: 20221105
  12. METHOTREXATE [Concomitant]
     Active Substance: METHOTREXATE
     Dosage: 25 MG, WEEKLY
     Route: 048

REACTIONS (18)
  - Haemorrhage [Not Recovered/Not Resolved]
  - Therapeutic response shortened [Recovering/Resolving]
  - Abdominal rigidity [Not Recovered/Not Resolved]
  - Rectal tenesmus [Unknown]
  - Abnormal faeces [Unknown]
  - Discomfort [Unknown]
  - Muscle spasms [Unknown]
  - Mucous stools [Unknown]
  - Nausea [Not Recovered/Not Resolved]
  - Condition aggravated [Recovered/Resolved]
  - Fatigue [Not Recovered/Not Resolved]
  - Insomnia [Not Recovered/Not Resolved]
  - COVID-19 [Recovered/Resolved]
  - Headache [Unknown]
  - Condition aggravated [Not Recovered/Not Resolved]
  - Off label use [Unknown]
  - Off label use [Unknown]
  - Intentional product use issue [Unknown]

NARRATIVE: CASE EVENT DATE: 20220101
